FAERS Safety Report 22519223 (Version 2)
Quarter: 2023Q2

REPORT INFORMATION
  Report Type: Other
  Country: RU (occurrence: None)
  Receive Date: 20230605
  Receipt Date: 20230608
  Transmission Date: 20230721
  Serious: Yes (Other)
  Sender: FDA-Public Use
  Company Number: RU-ROCHE-3359446

PATIENT

DRUGS (3)
  1. VEMURAFENIB [Suspect]
     Active Substance: VEMURAFENIB
     Indication: Langerhans^ cell histiocytosis
     Route: 048
  2. CYTARABINE [Suspect]
     Active Substance: CYTARABINE
     Indication: Langerhans^ cell histiocytosis
     Dosage: WITH 1H IV INFUSION, DAYS 1-5
     Route: 065
  3. CLADRIBINE [Suspect]
     Active Substance: CLADRIBINE
     Indication: Langerhans^ cell histiocytosis
     Dosage: 3 COURSES, WITH 1H IV INFUSION, DAYS 1-5
     Route: 065

REACTIONS (17)
  - Anaemia [Unknown]
  - Neutropenia [Unknown]
  - Febrile neutropenia [Unknown]
  - Thrombocytopenia [Unknown]
  - Lymphadenopathy [Unknown]
  - Myelodysplastic syndrome [Unknown]
  - Otitis externa [Unknown]
  - Subcutaneous abscess [Unknown]
  - Chalazion [Unknown]
  - Disseminated Bacillus Calmette-Guerin infection [Unknown]
  - Herpes zoster [Unknown]
  - Electrocardiogram QT prolonged [Unknown]
  - Headache [Unknown]
  - Vomiting [Unknown]
  - Rash maculo-papular [Unknown]
  - Pyrexia [Unknown]
  - Nausea [Unknown]
